FAERS Safety Report 7779663-9 (Version None)
Quarter: 2011Q3

REPORT INFORMATION
  Report Type: 
  Country: None (occurrence: None)
  Receive Date: 20110927
  Receipt Date: 20090611
  Transmission Date: 20111222
  Serious: Yes (Other)
  Sender: FDA-Public Use
  Company Number: US-BAYER-200920186NA

PATIENT
  Age: 75 Year
  Sex: Female
  Weight: 92.517 kg

DRUGS (31)
  1. MAGNEVIST [Suspect]
     Indication: NUCLEAR MAGNETIC RESONANCE IMAGING
     Dosage: 20 ML, UNK
     Dates: start: 20021030
  2. WARFARIN SODIUM [Concomitant]
  3. NITROGLYCERIN [Concomitant]
  4. PREDNISONE [Concomitant]
  5. PROHANCE [Suspect]
     Indication: NUCLEAR MAGNETIC RESONANCE IMAGING
  6. GADOLINIUM IN UNSPECIFIED DRUG [Suspect]
     Indication: NUCLEAR MAGNETIC RESONANCE IMAGING
     Dosage: UNK
     Dates: start: 20021024
  7. MONOPRIL [Concomitant]
  8. MAGNEVIST [Suspect]
     Dosage: 20 ML
     Dates: start: 20061009
  9. LEVOTHYROXINE SODIUM [Concomitant]
  10. FERROUS SULFATE TAB [Concomitant]
  11. NORVASC [Concomitant]
  12. VITAMIN E [Concomitant]
  13. MAGNEVIST [Suspect]
     Indication: ANGIOGRAM
     Dosage: 20 ML, UNK
     Dates: start: 20051013
  14. MULTIHANCE [Suspect]
     Indication: NUCLEAR MAGNETIC RESONANCE IMAGING
  15. EPOGEN [Concomitant]
  16. ALLOPURINOL [Concomitant]
  17. ROCALTROL [Concomitant]
  18. CALCITRIOL [Concomitant]
  19. OMNISCAN [Suspect]
     Indication: NUCLEAR MAGNETIC RESONANCE IMAGING
  20. MOBIC [Concomitant]
  21. MAGNEVIST [Suspect]
     Dosage: 20 ML, UNK
     Dates: start: 20051027
  22. TUMS [CALCIUM CARBONATE] [Concomitant]
  23. VITAMIN D [Concomitant]
  24. FOSAMAX [Concomitant]
  25. OPTIMARK [Suspect]
     Indication: NUCLEAR MAGNETIC RESONANCE IMAGING
  26. PLENDIL [Concomitant]
  27. MAGNEVIST [Suspect]
     Dosage: 20 ML, UNK
     Dates: start: 20030610
  28. MAGNEVIST [Suspect]
     Dosage: 20 ML
     Dates: start: 20060411
  29. LASIX [Concomitant]
  30. PROCRIT [Concomitant]
  31. CALCIUM CARBONATE [Concomitant]

REACTIONS (12)
  - SWELLING [None]
  - ANHEDONIA [None]
  - SKIN DISCOLOURATION [None]
  - SKIN HYPERTROPHY [None]
  - SKIN EXFOLIATION [None]
  - SKIN TIGHTNESS [None]
  - ANXIETY [None]
  - SKIN FIBROSIS [None]
  - PAIN [None]
  - NEPHROGENIC SYSTEMIC FIBROSIS [None]
  - EMOTIONAL DISTRESS [None]
  - EXTREMITY CONTRACTURE [None]
